FAERS Safety Report 5265218-7 (Version None)
Quarter: 2007Q1

REPORT INFORMATION
  Report Type: 
  Country: None (occurrence: None)
  Receive Date: 20061121
  Receipt Date: 20060814
  Transmission Date: 20070707
  Serious: No
  Sender: FDA-Public Use
  Company Number: TPA2006A01350

PATIENT
  Age: 73 Year
  Sex: Female

DRUGS (16)
  1. ROZEREM [Suspect]
     Indication: INSOMNIA
     Dosage: PER ORAL
     Route: 048
  2. HYZAAR [Concomitant]
  3. METOPROLOL TARTRATE [Concomitant]
  4. LEVOXYL [Concomitant]
  5. CYTOMEL [Concomitant]
  6. NAPROXEN [Concomitant]
  7. OXYBUTYNIN CHLORIDE [Concomitant]
  8. FOSAMAX [Concomitant]
  9. EPOETIN ALFA (EPOETIN ALFA) [Concomitant]
  10. FUROSEMIDE [Concomitant]
  11. POTASSIUM CHLORIDE [Concomitant]
  12. FOLIC ACID [Concomitant]
  13. MULTIVITAMIN [Concomitant]
  14. CYANOCOBALAMIN [Concomitant]
  15. GLUCOSAMINE W/CHONDROITIN (GLUCOSAMINE, CHONDROITIN SULFATE) [Concomitant]
  16. AMBIEN [Concomitant]

REACTIONS (1)
  - HANGOVER [None]
